FAERS Safety Report 6169441-9 (Version None)
Quarter: 2009Q2

REPORT INFORMATION
  Report Type: 
  Country: None (occurrence: None)
  Receive Date: 20090428
  Receipt Date: 20090417
  Transmission Date: 20091009
  Serious: Yes (Other)
  Sender: FDA-Public Use
  Company Number: PHHY2009BR14513

PATIENT
  Age: 37 Year
  Sex: Male
  Weight: 68 kg

DRUGS (3)
  1. MYFORTIC [Suspect]
     Dosage: 1 DF, QID
     Route: 048
  2. MYFORTIC [Suspect]
     Dosage: 1 DF, Q12H
     Route: 048
  3. MYFORTIC [Suspect]
     Dosage: 1DF
     Route: 048
     Dates: start: 20090417

REACTIONS (7)
  - ASTHENIA [None]
  - BONE PAIN [None]
  - CONJUNCTIVITIS [None]
  - DEPRESSED MOOD [None]
  - FATIGUE [None]
  - PAIN IN EXTREMITY [None]
  - POOR QUALITY SLEEP [None]
